FAERS Safety Report 12221585 (Version 2)
Quarter: 2016Q3

REPORT INFORMATION
  Report Type: Spontaneous
  Country: IT (occurrence: IT)
  Receive Date: 20160330
  Receipt Date: 20160719
  Transmission Date: 20161109
  Serious: Yes (Other)
  Sender: FDA-Public Use
  Company Number: IT-TEVA-646389ACC

PATIENT
  Age: 59 Year
  Sex: Female

DRUGS (3)
  1. METFORMINA TEVA - COMPRESSE RIVESTITE 500 MG - TEVA ITALIA S.R.L. [Suspect]
     Active Substance: METFORMIN HYDROCHLORIDE
     Indication: TYPE 2 DIABETES MELLITUS
     Dosage: 1500 MILLIGRAM DAILY; 1500 MG DAILY
     Route: 048
     Dates: start: 20151215, end: 20160310
  2. ZANTIPRIDE - 30 MG + 12.5 MG COMPRESSE RIVESTITE CON FILM- F.I.R.M.A. [Concomitant]
     Indication: HYPERTENSION
     Dosage: 1 DF
     Route: 048
     Dates: start: 20151215
  3. CONGESCOR - COMPRESSE 2.5 MG- BB FARMA S.R.L. [Concomitant]
     Indication: CARDIAC FAILURE
     Dosage: 1 DF
     Route: 048
     Dates: start: 20151215

REACTIONS (1)
  - Dysentery [Recovered/Resolved]

NARRATIVE: CASE EVENT DATE: 20160310
